FAERS Safety Report 21821190 (Version 2)
Quarter: 2023Q1

REPORT INFORMATION
  Report Type: Spontaneous
  Country: US (occurrence: US)
  Receive Date: 20230105
  Receipt Date: 20230119
  Transmission Date: 20230417
  Serious: Yes (Other)
  Sender: FDA-Public Use
  Company Number: US-BROWN + BURK(UK) LIMITED-ML2023-00072

PATIENT

DRUGS (2)
  1. CROMOLYN SODIUM [Suspect]
     Active Substance: CROMOLYN SODIUM
     Indication: Prophylaxis
     Dosage: 400 MG 4 TID FOR OVER 5 YEARS
     Route: 048
  2. HUMIRA [Concomitant]
     Active Substance: ADALIMUMAB
     Indication: Autoimmune disorder

REACTIONS (7)
  - Choking [Unknown]
  - Haematochezia [Unknown]
  - Oesophageal irritation [Unknown]
  - Cough [Unknown]
  - Oesophagitis [Unknown]
  - Drug ineffective [Unknown]
  - Product quality issue [Unknown]
